FAERS Safety Report 21088799 (Version 1)
Quarter: 2022Q3

REPORT INFORMATION
  Report Type: Spontaneous
  Country: US (occurrence: None)
  Receive Date: 20220715
  Receipt Date: 20220715
  Transmission Date: 20221027
  Serious: No
  Sender: FDA-Public Use
  Company Number: None

PATIENT
  Age: 49 Year
  Sex: Female

DRUGS (1)
  1. COSENTYX [Suspect]
     Active Substance: SECUKINUMAB
     Indication: Psoriasis
     Dosage: FREQUENCY : WEEKLY;?1 INJECT 300MG (2 PENS) SUBCUTANEOUSLY ONCE A WEEK FOR?5 WEEKS AS DIRECTED.?
     Route: 058
     Dates: start: 202110

REACTIONS (2)
  - Therapy interrupted [None]
  - COVID-19 [None]
